FAERS Safety Report 16202774 (Version 1)
Quarter: 2019Q2

REPORT INFORMATION
  Report Type: Spontaneous
  Country: US (occurrence: US)
  Receive Date: 20190312
  Receipt Date: 20190312
  Transmission Date: 20190711
  Serious: Yes (Disabling, Other)
  Sender: FDA-Public Use
  Company Number: None

PATIENT
  Age: 50 Year
  Sex: Male
  Weight: 124.74 kg

DRUGS (8)
  1. TYLENOL [Concomitant]
     Active Substance: ACETAMINOPHEN
  2. ATENOLOL. [Concomitant]
     Active Substance: ATENOLOL
  3. VALSARTAN/HCTZ 300MG/25MG [Suspect]
     Active Substance: HYDROCHLOROTHIAZIDE\VALSARTAN
     Indication: HYPERTENSION
     Dosage: ?          OTHER STRENGTH:320 MG/25MG;QUANTITY:30 DF DOSAGE FORM;?
     Route: 048
     Dates: start: 20171115
  4. VITAMIN D NOS [Concomitant]
     Active Substance: VITAMIN D NOS
  5. BACLOFEN. [Concomitant]
     Active Substance: BACLOFEN
  6. DICLOFENAC GEL [Concomitant]
     Active Substance: DICLOFENAC
  7. PANTOPRAZOLE [Concomitant]
     Active Substance: PANTOPRAZOLE
  8. HYDROCHLOROTHIAZIDE. [Concomitant]
     Active Substance: HYDROCHLOROTHIAZIDE

REACTIONS (1)
  - No adverse event [None]
